FAERS Safety Report 10046591 (Version 2)
Quarter: 2015Q4

REPORT INFORMATION
  Report Type: Spontaneous
  Country: US (occurrence: US)
  Receive Date: 20140331
  Receipt Date: 20151019
  Transmission Date: 20160304
  Serious: No
  Sender: FDA-Public Use
  Company Number: US-BIOGENIDEC-2014BI028464

PATIENT
  Age: 40 Year
  Sex: Male
  Weight: 70 kg

DRUGS (6)
  1. AMPYRA [Concomitant]
     Active Substance: DALFAMPRIDINE
  2. CARDURA [Concomitant]
     Active Substance: DOXAZOSIN MESYLATE
  3. TECFIDERA [Suspect]
     Active Substance: DIMETHYL FUMARATE
     Indication: PRODUCT USED FOR UNKNOWN INDICATION
     Route: 048
     Dates: end: 201312
  4. LYRICA [Concomitant]
     Active Substance: PREGABALIN
  5. METOPROLOL ER [Concomitant]
     Active Substance: METOPROLOL SUCCINATE
  6. AMITRIPTYLIN [Concomitant]
     Active Substance: AMITRIPTYLINE

REACTIONS (3)
  - Pyrexia [Recovered/Resolved]
  - Bacterial infection [Unknown]
  - Decreased interest [Unknown]

NARRATIVE: CASE EVENT DATE: 201311
